FAERS Safety Report 8825511 (Version 2)
Quarter: 2012Q4

REPORT INFORMATION
  Report Type: 
  Country: US (occurrence: US)
  Receive Date: 20121004
  Receipt Date: 20121022
  Transmission Date: 20130627
  Serious: Yes (Other)
  Sender: FDA-Public Use
  Company Number: US-ASTRAZENECA-2012SE74657

PATIENT
  Age: 86 Year
  Sex: Female

DRUGS (5)
  1. NEXIUM [Suspect]
     Route: 048
  2. SEROQUEL [Suspect]
     Indication: CEREBROVASCULAR ACCIDENT
     Route: 048
  3. SEROQUEL [Suspect]
     Indication: HALLUCINATION
     Route: 048
  4. CRESTOR [Suspect]
     Route: 048
  5. TOPAMAX [Concomitant]

REACTIONS (6)
  - Cerebrovascular accident [Unknown]
  - Cystitis [Unknown]
  - Urinary tract infection [Unknown]
  - Malaise [Unknown]
  - Adverse event [Unknown]
  - Off label use [Unknown]
